FAERS Safety Report 5545326-3 (Version None)
Quarter: 2007Q4

REPORT INFORMATION
  Report Type: 
  Country: None (occurrence: None)
  Receive Date: 20071206
  Receipt Date: 20071206
  Transmission Date: 20080405
  Serious: Yes (Other)
  Sender: FDA-Public Use
  Company Number: None

PATIENT
  Sex: Female
  Weight: 68.0396 kg

DRUGS (1)
  1. WELLBUTRIN SR [Suspect]
     Indication: BIPOLAR I DISORDER
     Dosage: 150 MG ONE D PO
     Route: 048
     Dates: start: 20060901

REACTIONS (2)
  - PSYCHIATRIC DECOMPENSATION [None]
  - THERAPEUTIC RESPONSE UNEXPECTED WITH DRUG SUBSTITUTION [None]
